FAERS Safety Report 9715224 (Version 1)
Quarter: 2013Q4

REPORT INFORMATION
  Report Type: Report from Study
  Country: FR (occurrence: FR)
  Receive Date: 20131126
  Receipt Date: 20131126
  Transmission Date: 20140711
  Serious: Yes (Other)
  Sender: FDA-Public Use
  Company Number: FR-ROCHE-1309352

PATIENT
  Sex: Female

DRUGS (2)
  1. SOMATROPIN [Suspect]
     Indication: TURNER^S SYNDROME
     Dosage: STRENGTH: 10 MG/2ML
     Route: 058
     Dates: start: 20090225
  2. LEVOTHYROX [Concomitant]
     Route: 065

REACTIONS (1)
  - Strabismus [Recovered/Resolved]
